FAERS Safety Report 7574348-6 (Version None)
Quarter: 2011Q2

REPORT INFORMATION
  Report Type: 
  Country: None (occurrence: None)
  Receive Date: 20110627
  Receipt Date: 20110617
  Transmission Date: 20111010
  Serious: Yes (Hospitalization, Other)
  Sender: FDA-Public Use
  Company Number: US-MERCK-1012USA01903

PATIENT
  Age: 47 Year
  Sex: Female
  Weight: 82 kg

DRUGS (13)
  1. [THERAPY UNSPECIFIED] [Concomitant]
     Dosage: FOR TX OF RA
     Route: 065
  2. FOSAMAX [Suspect]
     Indication: OSTEOPOROTIC FRACTURE
     Route: 048
     Dates: start: 20010101, end: 20080101
  3. VITAMINS (UNSPECIFIED) [Concomitant]
     Dosage: PRE-NATAL
     Route: 065
     Dates: start: 20080101
  4. ALENDRONATE SODIUM [Suspect]
     Indication: OSTEOPOROSIS
     Route: 048
     Dates: start: 20080601, end: 20090101
  5. POTASSIUM (UNSPECIFIED) [Concomitant]
     Route: 065
     Dates: start: 20080101
  6. OMEPRAZOLE [Concomitant]
     Route: 065
  7. ALENDRONATE SODIUM [Suspect]
     Indication: OSTEOPOROTIC FRACTURE
     Route: 048
     Dates: start: 20080601, end: 20090101
  8. OS-CAL [Concomitant]
     Route: 065
     Dates: start: 20050801
  9. FOLIC ACID [Concomitant]
     Dosage: 1
     Route: 065
     Dates: start: 20080101
  10. PRILOSEC [Concomitant]
     Route: 048
  11. FOSAMAX [Suspect]
     Indication: OSTEOPOROSIS
     Route: 048
     Dates: start: 20010101, end: 20080101
  12. VITAMINS (UNSPECIFIED) [Concomitant]
     Dosage: MULTIVITAMIN
     Route: 065
     Dates: start: 20050101
  13. CORTICOSTEROIDS (UNSPECIFIED) [Concomitant]
     Route: 065

REACTIONS (33)
  - FEMUR FRACTURE [None]
  - BLINDNESS [None]
  - BONE DISORDER [None]
  - FRACTURE NONUNION [None]
  - ESCHERICHIA URINARY TRACT INFECTION [None]
  - STRESS URINARY INCONTINENCE [None]
  - DEVICE FAILURE [None]
  - URINARY TRACT INFECTION [None]
  - DEPRESSION [None]
  - CHEST PAIN [None]
  - ANAEMIA POSTOPERATIVE [None]
  - LOW TURNOVER OSTEOPATHY [None]
  - HYPOKALAEMIA [None]
  - OSTEOARTHRITIS [None]
  - OEDEMA PERIPHERAL [None]
  - GASTROOESOPHAGEAL REFLUX DISEASE [None]
  - SPONDYLOLISTHESIS [None]
  - URINARY TRACT INFECTION BACTERIAL [None]
  - CYST [None]
  - ARTHROPATHY [None]
  - ADVERSE DRUG REACTION [None]
  - PALPITATIONS [None]
  - OPTIC ISCHAEMIC NEUROPATHY [None]
  - SKIN LESION [None]
  - ARTHRALGIA [None]
  - SLEEP APNOEA SYNDROME [None]
  - GASTRIC ULCER [None]
  - PSORIASIS [None]
  - INTERVERTEBRAL DISC DEGENERATION [None]
  - MELANOCYTIC NAEVUS [None]
  - DIARRHOEA [None]
  - BLOOD GLUCOSE INCREASED [None]
  - GAIT DISTURBANCE [None]
